FAERS Safety Report 24676774 (Version 1)
Quarter: 2024Q4

REPORT INFORMATION
  Report Type: Report from Study
  Country: ZA (occurrence: ZA)
  Receive Date: 20241128
  Receipt Date: 20241128
  Transmission Date: 20250115
  Serious: Yes (Death)
  Sender: ABBVIE
  Company Number: ZA-ABBVIE-6023309

PATIENT
  Age: 81 Year
  Sex: Male

DRUGS (2)
  1. BOTOX [Suspect]
     Active Substance: ONABOTULINUMTOXINA
     Indication: Torticollis
     Dosage: TIME INTERVAL: AS NECESSARY: EVERY THREE MONTHS?FORM STRENGTH: 50 UNITS
     Route: 065
     Dates: start: 20230804, end: 20230804
  2. BOTOX [Suspect]
     Active Substance: ONABOTULINUMTOXINA
     Indication: Torticollis
     Dosage: TIME INTERVAL: AS NECESSARY: EVERY THREE MONTHS?FORM STRENGTH: 50 UNITS
     Route: 065
     Dates: start: 20240830, end: 20240830

REACTIONS (1)
  - Death [Fatal]

NARRATIVE: CASE EVENT DATE: 20240101
